FAERS Safety Report 4403287-4 (Version None)
Quarter: 2004Q3

REPORT INFORMATION
  Report Type: 
  Country: None (occurrence: None)
  Receive Date: 20040715
  Receipt Date: 20040630
  Transmission Date: 20050211
  Serious: Yes (Hospitalization, Other)
  Sender: FDA-Public Use
  Company Number: 2003-06025

PATIENT
  Age: 29 Year
  Sex: Female
  Weight: 54.2048 kg

DRUGS (14)
  1. TENOFOVIR DF (TENOFOVIR DISOPROXIL FUMARATE) [Suspect]
     Indication: HIV INFECTION
     Dosage: 300 MG, 1 IN 1 D,ORAL
     Route: 048
     Dates: start: 20030730, end: 20030817
  2. EFAVIRENZ (EFAVIRENZ) [Concomitant]
  3. 3TC (LAMIVUDINE) [Concomitant]
  4. DAPSONE [Concomitant]
  5. DARBEPOETIN (DARBEPOETIN ALFA) [Concomitant]
  6. ZITHROMAX [Concomitant]
  7. VALTREX (VALACICLOVIR HYDROCHLRIDE) [Concomitant]
  8. TYLENOL [Concomitant]
  9. DIFLUCAN [Concomitant]
  10. RIFAMPICIN [Concomitant]
  11. ISONIAZID (INSONIAZID) [Concomitant]
  12. PYRAZINAMIDE [Concomitant]
  13. ETHAMBUTOL HCL [Concomitant]
  14. VITAMIN B6 [Concomitant]

REACTIONS (13)
  - ABDOMINAL PAIN UPPER [None]
  - BLOOD CREATININE INCREASED [None]
  - CD4 LYMPHOCYTES DECREASED [None]
  - GENERALISED OEDEMA [None]
  - HEPATIC FAILURE [None]
  - HERPES SIMPLEX [None]
  - IMMUNE RECONSTITUTION SYNDROME [None]
  - JAUNDICE [None]
  - LYMPHADENOPATHY [None]
  - MYCOBACTERIUM AVIUM COMPLEX INFECTION [None]
  - ORAL CANDIDIASIS [None]
  - RENAL FAILURE [None]
  - TUBERCULOSIS [None]
